FAERS Safety Report 7740430-3 (Version None)
Quarter: 2011Q3

REPORT INFORMATION
  Report Type: 
  Country: None (occurrence: None)
  Receive Date: 20110909
  Receipt Date: 20110830
  Transmission Date: 20111222
  Serious: Yes (Hospitalization, Other)
  Sender: FDA-Public Use
  Company Number: US-BAYER-201022966NA

PATIENT
  Age: 22 Year
  Sex: Female
  Weight: 139.23 kg

DRUGS (15)
  1. ZOLOFT [Concomitant]
     Dosage: 10 MG, UNK
     Route: 048
  2. MOTRIN [Concomitant]
     Indication: PAIN
     Dosage: 600 MG, QID
     Route: 048
     Dates: start: 20080801
  3. VICODIN [Concomitant]
  4. IRON TABLETS [Concomitant]
     Dosage: UNK
     Route: 048
     Dates: start: 20080801
  5. YAZ [Suspect]
     Indication: CONTRACEPTION
     Route: 048
     Dates: start: 20050501, end: 20071101
  6. DROSPIRENONE AND ETHINYL ESTRADIOL [Suspect]
     Indication: CONTRACEPTION
     Route: 065
     Dates: start: 20050501, end: 20071101
  7. TYLENOL W/ CODEINE NO. 3 [Concomitant]
     Indication: PAIN
     Dosage: UNK UNK, QID
     Route: 048
     Dates: start: 20080801
  8. PROZAC [Concomitant]
     Indication: DEPRESSION
  9. YASMIN [Suspect]
     Indication: CONTRACEPTION
     Route: 048
     Dates: start: 20050501, end: 20071101
  10. GLYBURIDE [Concomitant]
  11. PEPCID [Concomitant]
  12. PRENATAL VITAMINS [Concomitant]
     Route: 048
  13. TRI-SPRINTEC [Concomitant]
     Dosage: UNK
     Dates: start: 20080918
  14. AUGMENTIN '125' [Concomitant]
  15. CENOGEN ULTRA VITAMINS [Concomitant]
     Dosage: UNK
     Route: 048
     Dates: start: 20080801

REACTIONS (7)
  - DYSPNOEA [None]
  - CHOLECYSTITIS CHRONIC [None]
  - VOMITING [None]
  - DIARRHOEA [None]
  - PREGNANCY ON ORAL CONTRACEPTIVE [None]
  - CHOLELITHIASIS [None]
  - ABDOMINAL PAIN [None]
